FAERS Safety Report 14685367 (Version 1)
Quarter: 2018Q1

REPORT INFORMATION
  Report Type: Spontaneous
  Country: AT (occurrence: AT)
  Receive Date: 20180327
  Receipt Date: 20180327
  Transmission Date: 20180509
  Serious: Yes (Hospitalization)
  Sender: FDA-Public Use
  Company Number: PHHY2018AT038063

PATIENT
  Age: 30 Year
  Sex: Male

DRUGS (7)
  1. RITALIN LA [Suspect]
     Active Substance: METHYLPHENIDATE HYDROCHLORIDE
     Dosage: 1390 MG, QD
     Route: 065
     Dates: start: 20170302
  2. RITALIN LA [Suspect]
     Active Substance: METHYLPHENIDATE HYDROCHLORIDE
     Dosage: 400 MG, UNK
     Route: 065
  3. RITALIN LA [Suspect]
     Active Substance: METHYLPHENIDATE HYDROCHLORIDE
     Dosage: 1200 MG, QD
     Route: 065
  4. RITALIN [Suspect]
     Active Substance: METHYLPHENIDATE HYDROCHLORIDE
     Indication: ATTENTION DEFICIT/HYPERACTIVITY DISORDER
     Dosage: 10 MG, QD (10 MG X 30)
     Route: 065
  5. RITALIN [Suspect]
     Active Substance: METHYLPHENIDATE HYDROCHLORIDE
     Dosage: 40 MG, QD (40 MG X 30 )
     Route: 065
  6. RITALIN LA [Suspect]
     Active Substance: METHYLPHENIDATE HYDROCHLORIDE
     Dosage: 800 MG, UNK
     Route: 065
  7. RITALIN LA [Suspect]
     Active Substance: METHYLPHENIDATE HYDROCHLORIDE
     Indication: ATTENTION DEFICIT/HYPERACTIVITY DISORDER
     Dosage: 160 MG, QD
     Route: 065
     Dates: start: 20170301

REACTIONS (12)
  - Blood uric acid decreased [Unknown]
  - Fibromyalgia [Unknown]
  - Attention deficit/hyperactivity disorder [Unknown]
  - Lymphocyte percentage decreased [Unknown]
  - Lipase increased [Unknown]
  - Activated partial thromboplastin time prolonged [Unknown]
  - Nicotine dependence [Unknown]
  - Haemoglobin increased [Unknown]
  - Intentional overdose [Unknown]
  - Blood phosphorus increased [Unknown]
  - Drug level increased [Unknown]
  - Drug ineffective [Unknown]

NARRATIVE: CASE EVENT DATE: 20170208
